FAERS Safety Report 5798378-X (Version None)
Quarter: 2008Q3

REPORT INFORMATION
  Report Type: 
  Country: None (occurrence: None)
  Receive Date: 20080702
  Receipt Date: 20080408
  Transmission Date: 20090109
  Serious: No
  Sender: FDA-Public Use
  Company Number: A0721647A

PATIENT
  Age: 62 Year
  Sex: Female

DRUGS (2)
  1. PARNATE [Suspect]
     Indication: MAJOR DEPRESSION
     Dosage: 2.5MG AS REQUIRED
     Route: 048
     Dates: start: 19870101
  2. LEVOXYL [Concomitant]

REACTIONS (10)
  - BASEDOW'S DISEASE [None]
  - CHEST DISCOMFORT [None]
  - DEPRESSION [None]
  - DIPLOPIA [None]
  - DYSPNOEA [None]
  - FLUID RETENTION [None]
  - HEADACHE [None]
  - PANIC ATTACK [None]
  - URTICARIA [None]
  - VISION BLURRED [None]
